FAERS Safety Report 10260475 (Version 2)
Quarter: 2014Q2

REPORT INFORMATION
  Report Type: Report from Study
  Country: US (occurrence: US)
  Receive Date: 20140625
  Receipt Date: 20140630
  Transmission Date: 20141212
  Serious: Yes (Other)
  Sender: FDA-Public Use
  Company Number: US-BRISTOL-MYERS SQUIBB COMPANY-21114319

PATIENT
  Age: 2 Year
  Sex: Female

DRUGS (27)
  1. DASATINIB [Suspect]
     Indication: ACUTE LYMPHOCYTIC LEUKAEMIA
     Route: 048
     Dates: start: 20140307
  2. IFOSFAMIDE [Suspect]
     Indication: ACUTE LYMPHOCYTIC LEUKAEMIA
     Dates: start: 20140605
  3. VINCRISTINE [Suspect]
     Indication: ACUTE LYMPHOCYTIC LEUKAEMIA
     Dates: start: 20140605
  4. DAUNORUBICIN [Suspect]
     Indication: ACUTE LYMPHOCYTIC LEUKAEMIA
     Dates: start: 20140605
  5. DEXAMETHASONE [Suspect]
     Indication: ACUTE LYMPHOCYTIC LEUKAEMIA
     Dates: start: 20140605
  6. METHOTREXATE [Suspect]
     Indication: ACUTE LYMPHOCYTIC LEUKAEMIA
     Dates: start: 20140605
  7. LEUCOVORIN [Suspect]
     Indication: ACUTE LYMPHOCYTIC LEUKAEMIA
     Dates: start: 20140605
  8. CYTARABINE [Suspect]
     Indication: ACUTE LYMPHOCYTIC LEUKAEMIA
     Dates: start: 20140605
  9. HYDROCORTISONE [Suspect]
     Indication: ACUTE LYMPHOCYTIC LEUKAEMIA
     Dates: start: 20140605
  10. SULFA [Concomitant]
     Dates: start: 20140224
  11. ONDANSETRON [Concomitant]
     Dates: start: 20140222
  12. OXYCODONE [Concomitant]
     Dates: start: 20140222
  13. POLYETHYLENE GLYCOL [Concomitant]
     Dates: start: 20140222
  14. SEPTRA [Concomitant]
     Dates: start: 20140224
  15. ONDANSETRON [Concomitant]
     Dates: start: 20140222
  16. REGLAN [Concomitant]
     Dates: start: 20140527
  17. POTASSIUM CHLORIDE [Concomitant]
     Dosage: 1DF-20 MEQ/L
     Dates: start: 20140521
  18. LIDOCAINE + PRILOCAINE [Concomitant]
     Dates: start: 20140522
  19. DEXTROSE 5% [Concomitant]
     Dates: start: 20140523
  20. CEFEPIME HCL [Concomitant]
     Dates: start: 20140523
  21. CASPOFUNGIN ACETATE [Concomitant]
  22. LORAZEPAM [Concomitant]
     Dates: start: 20140523
  23. OMEPRAZOLE [Concomitant]
     Dates: start: 20140223
  24. ACETAMINOPHEN [Concomitant]
     Dates: start: 20140220
  25. BENADRYL [Concomitant]
     Dates: start: 20140220
  26. SODIUM CHLORIDE [Concomitant]
     Dates: start: 20140307
  27. MEGESTROL ACETATE [Concomitant]
     Dates: start: 20140605

REACTIONS (2)
  - Febrile neutropenia [Recovered/Resolved]
  - Mucosal inflammation [Recovered/Resolved]
